FAERS Safety Report 13064469 (Version 1)
Quarter: 2016Q4

REPORT INFORMATION
  Report Type: Spontaneous
  Country: US (occurrence: US)
  Receive Date: 20161223
  Receipt Date: 20161223
  Transmission Date: 20170207
  Serious: No
  Sender: FDA-Public Use
  Company Number: None

PATIENT
  Age: 36 Year
  Sex: Female

DRUGS (1)
  1. HUMIRA [Suspect]
     Active Substance: ADALIMUMAB
     Indication: CROHN^S DISEASE
     Route: 058
     Dates: start: 20160915

REACTIONS (4)
  - Haemorrhage [None]
  - Dry skin [None]
  - Skin fissures [None]
  - Increased tendency to bruise [None]

NARRATIVE: CASE EVENT DATE: 20161101
